FAERS Safety Report 7581172-7 (Version None)
Quarter: 2011Q2

REPORT INFORMATION
  Report Type: 
  Country: None (occurrence: None)
  Receive Date: 20110629
  Receipt Date: 20110628
  Transmission Date: 20111010
  Serious: Yes (Hospitalization, Other)
  Sender: FDA-Public Use
  Company Number: US-UCBSA-026772

PATIENT
  Sex: Female

DRUGS (3)
  1. BENADRYL [Concomitant]
  2. TYLENOL-500 [Concomitant]
  3. CIMZIA [Suspect]
     Indication: CROHN'S DISEASE
     Route: 058
     Dates: start: 20090723

REACTIONS (2)
  - OSTEOARTHRITIS [None]
  - CARPAL TUNNEL SYNDROME [None]
